FAERS Safety Report 19943502 (Version 1)
Quarter: 2021Q4

REPORT INFORMATION
  Report Type: Spontaneous
  Country: US (occurrence: US)
  Receive Date: 20211009
  Receipt Date: 20211009
  Transmission Date: 20220303
  Serious: Yes (Other)
  Sender: FDA-Public Use
  Company Number: None

PATIENT
  Age: 54 Year
  Sex: Female
  Weight: 110.25 kg

DRUGS (1)
  1. INJECTAFER [Suspect]
     Active Substance: FERRIC CARBOXYMALTOSE
     Indication: Serum ferritin decreased
     Route: 042
     Dates: start: 20210910, end: 20211001

REACTIONS (2)
  - Serum ferritin increased [None]
  - Blood phosphorus decreased [None]

NARRATIVE: CASE EVENT DATE: 20211001
